FAERS Safety Report 11339764 (Version 1)
Quarter: 2015Q3

REPORT INFORMATION
  Report Type: Spontaneous
  Country: FR (occurrence: FR)
  Receive Date: 20150805
  Receipt Date: 20150805
  Transmission Date: 20151125
  Serious: Yes (Hospitalization)
  Sender: FDA-Public Use
  Company Number: FR-ROCHE-1616569

PATIENT
  Age: 42 Year
  Sex: Male

DRUGS (7)
  1. PRINCI-B FORT [Concomitant]
     Dosage: ONE IN THE MORNING AND EVENING
     Route: 065
  2. VALIUM [Suspect]
     Active Substance: DIAZEPAM
     Indication: PRODUCT USED FOR UNKNOWN INDICATION
     Route: 048
  3. TERCIAN [Suspect]
     Active Substance: CYAMEMAZINE
     Indication: PRODUCT USED FOR UNKNOWN INDICATION
     Dosage: 0.5 IN THE MORNING, 0.5 AT LUNCH TIME AND 1 IN EVENING
     Route: 048
  4. THERALENE (FRANCE) [Concomitant]
     Active Substance: TRIMEPRAZINE
     Dosage: 20 DROPS DURING NIGHT
     Route: 065
  5. IMOVANE [Suspect]
     Active Substance: ZOPICLONE
     Indication: PRODUCT USED FOR UNKNOWN INDICATION
     Dosage: ONE IN THE EVENING
     Route: 048
  6. ATARAX [Suspect]
     Active Substance: HYDROXYZINE\HYDROXYZINE HYDROCHLORIDE
     Indication: PRODUCT USED FOR UNKNOWN INDICATION
     Dosage: ONE IN THE MORNING, LUNCH TIME AND EVENING
     Route: 048
  7. CYMBALTA [Concomitant]
     Active Substance: DULOXETINE HYDROCHLORIDE
     Dosage: ONE IN THE MORNING
     Route: 065

REACTIONS (2)
  - Ejection fraction decreased [Unknown]
  - Coma [Recovered/Resolved]

NARRATIVE: CASE EVENT DATE: 20150701
